FAERS Safety Report 18643566 (Version 1)
Quarter: 2020Q4

REPORT INFORMATION
  Report Type: Spontaneous
  Country: US (occurrence: US)
  Receive Date: 20201219
  Receipt Date: 20201219
  Transmission Date: 20210114
  Serious: Yes (Hospitalization)
  Sender: FDA-Public Use
  Company Number: None

PATIENT
  Sex: Male
  Weight: 80.4 kg

DRUGS (1)
  1. GEMCITABINE HYDROCHLORIDE (613327) [Suspect]
     Active Substance: GEMCITABINE HYDROCHLORIDE

REACTIONS (14)
  - Blood alkaline phosphatase increased [None]
  - Dyspnoea exertional [None]
  - Ascites [None]
  - Pulmonary embolism [None]
  - Cholangiocarcinoma [None]
  - Lymphadenopathy [None]
  - Blood bilirubin increased [None]
  - Jaundice [None]
  - Pulmonary infarction [None]
  - Infection [None]
  - Pleural effusion [None]
  - Atelectasis [None]
  - Hospice care [None]
  - Metastatic neoplasm [None]

NARRATIVE: CASE EVENT DATE: 20201211
